FAERS Safety Report 17803881 (Version 10)
Quarter: 2021Q2

REPORT INFORMATION
  Report Type: Report from Study
  Country: KR (occurrence: KR)
  Receive Date: 20200519
  Receipt Date: 20210525
  Transmission Date: 20210716
  Serious: Yes (Hospitalization)
  Sender: FDA-Public Use
  Company Number: KR-ROCHE-2601996

PATIENT
  Age: 57 Year
  Sex: Male
  Weight: 58 kg

DRUGS (46)
  1. TRAMADOL HCL [Concomitant]
     Active Substance: TRAMADOL HYDROCHLORIDE
     Indication: CHEST PAIN
     Dates: start: 20200512, end: 20200515
  2. ACETAMINOPHEN;TRAMADOL HYDROCHLORIDE [Concomitant]
     Indication: PROCEDURAL PAIN
     Dates: start: 20200630
  3. CEFTRIAXONE. [Concomitant]
     Active Substance: CEFTRIAXONE
     Indication: INFLAMMATION
     Route: 042
     Dates: start: 20200612, end: 20200617
  4. APROTININ;FIBRINOGEN;THROMBIN [Concomitant]
     Indication: ADHESION
     Dates: start: 20200612, end: 20200612
  5. ROCURONIUM BROMIDE. [Concomitant]
     Active Substance: ROCURONIUM BROMIDE
     Dates: start: 20200612, end: 20200612
  6. LEVOFLOXACIN. [Concomitant]
     Active Substance: LEVOFLOXACIN
     Indication: INFECTION PROPHYLAXIS
     Dates: start: 20200709, end: 20200709
  7. CARBOPLATIN. [Concomitant]
     Active Substance: CARBOPLATIN
     Dates: start: 20201124, end: 20210105
  8. PITAVASTATIN CALCIUM [Concomitant]
     Active Substance: PITAVASTATIN CALCIUM
     Dates: start: 2015
  9. CHLORHEXIDINE GLUCONATE. [Concomitant]
     Active Substance: CHLORHEXIDINE GLUCONATE
     Route: 048
     Dates: start: 20200612, end: 20200612
  10. PEMETREXED. [Concomitant]
     Active Substance: PEMETREXED
     Dates: start: 20210316, end: 20210406
  11. CISPLATIN. [Concomitant]
     Active Substance: CISPLATIN
     Dates: start: 20210504, end: 20210519
  12. PLACEBO [Suspect]
     Active Substance: UNSPECIFIED INGREDIENT
     Indication: NON-SMALL CELL LUNG CANCER
     Dosage: DATE OR MOST RECENT DOSE PRIOR TO SAE: 20/APR/2020
     Route: 041
     Dates: start: 20200420
  13. CODAEWON FORTE [Concomitant]
     Indication: COUGH
     Dates: start: 20200420, end: 20200520
  14. OXYCODONE HYDROCHLORIDE. [Concomitant]
     Active Substance: OXYCODONE HYDROCHLORIDE
     Indication: PROCEDURAL PAIN
     Route: 048
     Dates: start: 20200614, end: 20200618
  15. ACETAMINOPHEN. [Concomitant]
     Active Substance: ACETAMINOPHEN
     Indication: PYREXIA
     Dates: start: 20200922, end: 20200924
  16. PEMBROLIZUMAB. [Concomitant]
     Active Substance: PEMBROLIZUMAB
     Dates: start: 20210121, end: 20210121
  17. ATEZOLIZUMAB. [Suspect]
     Active Substance: ATEZOLIZUMAB
     Indication: NON-SMALL CELL LUNG CANCER
     Dosage: DATE OF MOST RECENT DOSE OF ATEZOLIZUMAB PRIOR TO AE ONSET ON 20/APR/2020: 1200 MG
     Route: 041
     Dates: start: 20200420
  18. MORPHINE HCL [Concomitant]
     Active Substance: MORPHINE HYDROCHLORIDE
     Indication: CHEST PAIN
     Dates: start: 20200512, end: 20200515
  19. VASELINE PURE [Concomitant]
     Active Substance: PETROLATUM
     Route: 061
     Dates: start: 20200612, end: 20200612
  20. NOREPINEPHRINE. [Concomitant]
     Active Substance: NOREPINEPHRINE
     Dates: start: 20200612, end: 20200612
  21. LIDOCAINE. [Concomitant]
     Active Substance: LIDOCAINE
     Dates: start: 20200612, end: 20200612
  22. LACTULOSE. [Concomitant]
     Active Substance: LACTULOSE
     Indication: CONSTIPATION
     Dates: start: 20200615, end: 20200618
  23. FAMOTIDINE. [Concomitant]
     Active Substance: FAMOTIDINE
     Indication: GASTRITIS
     Dates: start: 20200710, end: 20200716
  24. RAMOSETRON [Concomitant]
     Active Substance: RAMOSETRON HYDROCHLORIDE
     Dates: start: 20200612, end: 20200612
  25. REMIFENTANIL [Concomitant]
     Active Substance: REMIFENTANIL
     Dates: start: 20200612, end: 20200613
  26. PETHIDINE [Concomitant]
     Active Substance: MEPERIDINE
     Dates: start: 20200612, end: 20200612
  27. MACROGOL 4000 [Concomitant]
     Active Substance: POLYETHYLENE GLYCOL 4000
     Indication: CONSTIPATION
     Dates: start: 20200614, end: 20200616
  28. AMOXICILLIN AND POTASSIUM CLAVULANATE [Concomitant]
     Active Substance: AMOXICILLIN\CLAVULANATE POTASSIUM
     Indication: INFLAMMATION
     Dates: start: 20200922, end: 20200930
  29. MEGACE ORAL SUSPENSION [Concomitant]
     Indication: DECREASED APPETITE
     Dates: start: 20200420, end: 20200520
  30. MORPHINE HCL [Concomitant]
     Active Substance: MORPHINE HYDROCHLORIDE
     Indication: PROCEDURAL PAIN
     Route: 042
     Dates: start: 20200612, end: 20200618
  31. METFORMIN HYDROCHLORIDE;VILDAGLIPTIN [Concomitant]
     Active Substance: METFORMIN HYDROCHLORIDE\VILDAGLIPTIN
     Indication: DIABETES MELLITUS
     Dosage: VILDAGLIPTIN 50MG + METFORMIN HCL 500MG
     Dates: start: 2015
  32. PANTOPRAZOLE [Concomitant]
     Active Substance: PANTOPRAZOLE
     Dates: start: 20200614, end: 20200630
  33. GEMCITABINE. [Concomitant]
     Active Substance: GEMCITABINE
     Dates: start: 20201124, end: 20210105
  34. TRAMADOL HCL [Concomitant]
     Active Substance: TRAMADOL HYDROCHLORIDE
     Indication: PROCEDURAL PAIN
     Dates: start: 20200512, end: 20200515
  35. TRAMADOL HCL [Concomitant]
     Active Substance: TRAMADOL HYDROCHLORIDE
     Route: 042
     Dates: start: 20200612, end: 20200613
  36. ACETAMINOPHEN;TRAMADOL HYDROCHLORIDE [Concomitant]
     Indication: CHEST PAIN
     Dosage: ACETAMINOPHEN 325MG + TRAMADOL HCL 37.5MG
     Dates: start: 20200420
  37. CEFTRIAXONE. [Concomitant]
     Active Substance: CEFTRIAXONE
     Indication: INFECTION PROPHYLAXIS
     Route: 042
     Dates: start: 20200611, end: 20200611
  38. CEFTRIAXONE. [Concomitant]
     Active Substance: CEFTRIAXONE
     Dates: start: 20200922, end: 20200922
  39. SUGAMMADEX [Concomitant]
     Active Substance: SUGAMMADEX
     Dates: start: 20200612, end: 20200612
  40. PROPOFOL. [Concomitant]
     Active Substance: PROPOFOL
     Dates: start: 20200612, end: 20200612
  41. MEGESTROL ACETATE. [Concomitant]
     Active Substance: MEGESTROL ACETATE
     Indication: DECREASED APPETITE
     Dates: start: 20200630, end: 20200811
  42. PIPERACILLINE / TAZOBACTAM [Concomitant]
     Active Substance: PIPERACILLIN SODIUM\TAZOBACTAM SODIUM
     Indication: INFECTION PROPHYLAXIS
     Dates: start: 20200709, end: 20200709
  43. CEFPODOXIME [Concomitant]
     Active Substance: CEFPODOXIME
     Indication: INFECTION PROPHYLAXIS
     Dates: start: 20200710, end: 20200716
  44. PHENYLEPHRINE [Concomitant]
     Active Substance: PHENYLEPHRINE HYDROCHLORIDE
     Dates: start: 20200612, end: 20200612
  45. PANTOPRAZOLE [Concomitant]
     Active Substance: PANTOPRAZOLE
     Dates: start: 20200612, end: 20200612
  46. IRINOTECAN HCL [Concomitant]
     Active Substance: IRINOTECAN HYDROCHLORIDE
     Dates: start: 20210504, end: 20210519

REACTIONS (2)
  - Pulmonary embolism [Recovering/Resolving]
  - Pericardial effusion [Recovering/Resolving]

NARRATIVE: CASE EVENT DATE: 20200512
